FAERS Safety Report 10979011 (Version 1)
Quarter: 2015Q2

REPORT INFORMATION
  Report Type: Spontaneous
  Country: US (occurrence: US)
  Receive Date: 20150402
  Receipt Date: 20150402
  Transmission Date: 20150821
  Serious: No
  Sender: FDA-Public Use
  Company Number: US-PFIZER INC-2015110983

PATIENT
  Age: 47 Year
  Sex: Female
  Weight: 97 kg

DRUGS (2)
  1. SOMA [Concomitant]
     Active Substance: CARISOPRODOL
     Indication: PAIN
     Dosage: 350 MG, 1X/DAY
     Route: 048
  2. LYRICA [Suspect]
     Active Substance: PREGABALIN
     Indication: NEURALGIA
     Dosage: 25 MG, 2X/DAY
     Route: 048
     Dates: start: 20150320

REACTIONS (1)
  - Muscle spasms [Not Recovered/Not Resolved]

NARRATIVE: CASE EVENT DATE: 20150321
